FAERS Safety Report 14367960 (Version 2)
Quarter: 2018Q1

REPORT INFORMATION
  Report Type: Spontaneous
  Country: FR (occurrence: FR)
  Receive Date: 20180109
  Receipt Date: 20180308
  Transmission Date: 20180509
  Serious: Yes (Hospitalization)
  Sender: FDA-Public Use
  Company Number: US-ASTRAZENECA-2018SE02676

PATIENT
  Age: 4 Month
  Sex: Male

DRUGS (4)
  1. SYNAGIS [Suspect]
     Active Substance: PALIVIZUMAB
     Indication: PREMATURE BABY
     Route: 030
     Dates: start: 20180221
  2. PREVENAR [Concomitant]
     Active Substance: PNEUMOCOCCAL 7-VALENT CONJUGATE VACCINE (DIPHTHERIA CRM197 PROTEIN)
     Indication: PRODUCT USED FOR UNKNOWN INDICATION
     Route: 030
     Dates: start: 20171108
  3. SYNAGIS [Suspect]
     Active Substance: PALIVIZUMAB
     Indication: PREMATURE BABY
     Route: 030
     Dates: start: 20171103, end: 20180117
  4. INFANRIX HEXA [Concomitant]
     Active Substance: DIPHTHERIA AND TETANUS TOXOIDS AND ACELLULAR PERTUSSIS ADSORBED, INACTIVATED POLIOVIRUS AND HAEMOPHILUS B CONJUGATE AND HEPATITIS B VIRUS VACCINE
     Indication: PRODUCT USED FOR UNKNOWN INDICATION
     Route: 030
     Dates: start: 20171108

REACTIONS (5)
  - Acute respiratory failure [Recovered/Resolved]
  - Bronchiolitis [Unknown]
  - Bronchiolitis [Recovered/Resolved]
  - Hypophagia [Unknown]
  - Dependence on oxygen therapy [Recovered/Resolved]

NARRATIVE: CASE EVENT DATE: 20171229
